FAERS Safety Report 5421589-X (Version None)
Quarter: 2007Q3

REPORT INFORMATION
  Report Type: 
  Country: None (occurrence: None)
  Receive Date: 20070726
  Receipt Date: 20070507
  Transmission Date: 20080115
  Serious: Yes (Other)
  Sender: FDA-Public Use
  Company Number: US200704002313

PATIENT
  Age: 48 Year
  Sex: Female

DRUGS (6)
  1. FORTEO [Suspect]
     Indication: OSTEOPOROSIS
     Dosage: 20 UG, DAILY (1/D), 20 UG, DAILY (1/D), 20 UG, DAILY (1/D)
     Dates: start: 20070201, end: 20070201
  2. FORTEO [Suspect]
     Indication: OSTEOPOROSIS
     Dosage: 20 UG, DAILY (1/D), 20 UG, DAILY (1/D), 20 UG, DAILY (1/D)
     Dates: start: 20070401, end: 20070410
  3. FORTEO [Suspect]
     Indication: OSTEOPOROSIS
     Dosage: 20 UG, DAILY (1/D), 20 UG, DAILY (1/D), 20 UG, DAILY (1/D)
     Dates: start: 20070427, end: 20070430
  4. FORTEO PEN (TERIPARATIDE) PEN, DISPOSABLE [Concomitant]
  5. PROAMATINE [Concomitant]
  6. PAXIL CR [Concomitant]

REACTIONS (5)
  - DEHYDRATION [None]
  - HYPOAESTHESIA [None]
  - ORTHOSTATIC HYPOTENSION [None]
  - PARAESTHESIA [None]
  - SYNCOPE [None]
